FAERS Safety Report 9843441 (Version 1)
Quarter: 2013Q4

REPORT INFORMATION
  Report Type: Spontaneous
  Country: US (occurrence: None)
  Receive Date: 20131223
  Receipt Date: 20131223
  Transmission Date: 20140711
  Serious: Yes (Other)
  Sender: FDA-Public Use
  Company Number: 222529LEO

PATIENT
  Age: 66 Year
  Sex: Female

DRUGS (2)
  1. PICATO (0.05%, GEL) [Suspect]
     Indication: ACTINIC KERATOSIS
     Dosage: DERMAL 1 IN 1 D
     Dates: start: 20130630, end: 20130630
  2. SYNTHYROID [Concomitant]

REACTIONS (5)
  - Application site erythema [None]
  - Application site pain [None]
  - Off label use [None]
  - Incorrect dose administered [None]
  - Incorrect drug administration duration [None]
